FAERS Safety Report 7350423-6 (Version None)
Quarter: 2011Q1

REPORT INFORMATION
  Report Type: 
  Country: None (occurrence: None)
  Receive Date: 20110314
  Receipt Date: 20110303
  Transmission Date: 20110831
  Serious: No
  Sender: FDA-Public Use
  Company Number: US-JNJFOC-20110302340

PATIENT
  Sex: Female

DRUGS (4)
  1. FENTANYL-100 [Suspect]
     Indication: PAIN
     Route: 062
  2. DURAGESIC-50 [Suspect]
     Indication: PAIN
     Route: 062
  3. DURAGESIC-50 [Suspect]
     Route: 062
  4. DURAGESIC-50 [Suspect]
     Route: 062

REACTIONS (4)
  - URTICARIA [None]
  - TREATMENT NONCOMPLIANCE [None]
  - WITHDRAWAL SYNDROME [None]
  - HEADACHE [None]
